FAERS Safety Report 15044097 (Version 1)
Quarter: 2018Q2

REPORT INFORMATION
  Report Type: Spontaneous
  Country: GB (occurrence: GB)
  Receive Date: 20180621
  Receipt Date: 20180621
  Transmission Date: 20180711
  Serious: Yes (Disabling, Other)
  Sender: FDA-Public Use
  Company Number: GB-TEVA-2018-GB-911313

PATIENT
  Age: 51 Year
  Sex: Female
  Weight: 65 kg

DRUGS (1)
  1. NITROFURANTOIN. [Suspect]
     Active Substance: NITROFURANTOIN
     Indication: ESCHERICHIA URINARY TRACT INFECTION
     Dosage: 4 DOSAGE FORMS DAILY;
     Route: 048

REACTIONS (10)
  - Spinal pain [Unknown]
  - Vision blurred [Unknown]
  - Facial pain [Unknown]
  - Nausea [Unknown]
  - Dizziness [Unknown]
  - Arthralgia [Unknown]
  - Abdominal pain upper [Unknown]
  - Paraesthesia [Unknown]
  - Somnolence [Unknown]
  - Tension headache [Unknown]
